FAERS Safety Report 10221961 (Version 1)
Quarter: 2014Q2

REPORT INFORMATION
  Report Type: Report from Study
  Country: GB (occurrence: GB)
  Receive Date: 20140606
  Receipt Date: 20140606
  Transmission Date: 20141212
  Serious: No
  Sender: FDA-Public Use
  Company Number: GB-BIOMARINAP-GB-2013-102178

PATIENT
  Age: 4 Year
  Sex: Male
  Weight: 17.3 kg

DRUGS (8)
  1. NAGLAZYME [Suspect]
     Indication: MUCOPOLYSACCHARIDOSIS VI
     Dosage: 15 MG, QOW
     Route: 041
     Dates: start: 20100707
  2. NAGLAZYME [Suspect]
     Dosage: 20 MG, QOW
     Route: 041
  3. PARACETAMOL [Concomitant]
     Indication: ANTIPYRESIS
     Dosage: 720 MG, QID
     Route: 048
     Dates: start: 20110702
  4. PARACETAMOL [Concomitant]
     Indication: ANALGESIC THERAPY
  5. IBUPROFEN [Concomitant]
     Indication: ANTIPYRESIS
     Dosage: 180 MG, TID
     Route: 048
     Dates: start: 20110702
  6. IBUPROFEN [Concomitant]
     Indication: ANALGESIC THERAPY
  7. CEFUROXIME [Concomitant]
     Indication: ANTIBIOTIC THERAPY
     Dosage: 720 MG, TID
     Route: 042
     Dates: start: 20110801
  8. CLINDAMYCIN [Concomitant]
     Indication: ANTIBIOTIC THERAPY
     Dosage: 288 MG, QID
     Route: 048
     Dates: start: 20110801

REACTIONS (1)
  - Ear infection [Unknown]
